FAERS Safety Report 21685130 (Version 4)
Quarter: 2023Q2

REPORT INFORMATION
  Report Type: Report from Study
  Country: BR (occurrence: BR)
  Receive Date: 20221206
  Receipt Date: 20230621
  Transmission Date: 20230722
  Serious: Yes (Other)
  Sender: FDA-Public Use
  Company Number: BR-CELLTRION INC.-2022BR020472

PATIENT

DRUGS (6)
  1. INFLIXIMAB [Suspect]
     Active Substance: INFLIXIMAB
     Indication: Rheumatoid arthritis
     Dosage: 6 BOXES EVERY 2 MONTHS
     Route: 042
     Dates: start: 2022, end: 20221003
  2. LOSARTAN [Concomitant]
     Active Substance: LOSARTAN
     Dosage: 2 CAPSULES A DAY
     Route: 048
     Dates: start: 2008
  3. LEFLUNOMIDE [Concomitant]
     Active Substance: LEFLUNOMIDE
     Indication: Rheumatic disorder
     Dosage: 1 CAPSULE A DAY
     Route: 048
     Dates: start: 2012
  4. BUPROPION [Concomitant]
     Active Substance: BUPROPION
     Indication: Antidepressant therapy
     Dosage: 1 CAPSULE A DAY (SINCE 6 YEARS AGO)
     Route: 048
  5. ATORVASTATIN [Concomitant]
     Active Substance: ATORVASTATIN
     Indication: Blood cholesterol
     Dosage: 1 CAPSULE A DAY (SINCE 3 YEARS AGO)
     Route: 048
  6. ZOLPIDEM [Concomitant]
     Active Substance: ZOLPIDEM TARTRATE
     Indication: Supplementation therapy
     Dosage: 1 CAPSULE AT NIGHT (1 CAPSULE A WEEK)
     Route: 048
     Dates: start: 202201

REACTIONS (3)
  - COVID-19 [Unknown]
  - Intentional dose omission [Unknown]
  - Therapy interrupted [Unknown]
